FAERS Safety Report 8076151-X (Version None)
Quarter: 2012Q1

REPORT INFORMATION
  Report Type: 
  Country: None (occurrence: None)
  Receive Date: 20120127
  Receipt Date: 20111106
  Transmission Date: 20120608
  Serious: No
  Sender: FDA-Public Use
  Company Number: US-GLAXOSMITHKLINE-A0953115A

PATIENT
  Sex: Female

DRUGS (1)
  1. WELLBUTRIN [Suspect]
     Indication: PRODUCT USED FOR UNKNOWN INDICATION
     Route: 065

REACTIONS (10)
  - PARAESTHESIA [None]
  - TEMPERATURE REGULATION DISORDER [None]
  - MUSCLE SPASMS [None]
  - HYPERHIDROSIS [None]
  - PALLOR [None]
  - PALPITATIONS [None]
  - NONSPECIFIC REACTION [None]
  - DIARRHOEA [None]
  - SKIN DISCOLOURATION [None]
  - FATIGUE [None]
